FAERS Safety Report 13030979 (Version 1)
Quarter: 2016Q4

REPORT INFORMATION
  Report Type: Spontaneous
  Country: US (occurrence: US)
  Receive Date: 20161215
  Receipt Date: 20161215
  Transmission Date: 20170207
  Serious: No
  Sender: FDA-Public Use
  Company Number: US-TARO-2016TAR00539

PATIENT
  Age: 81 Year
  Sex: Female
  Weight: 53.61 kg

DRUGS (5)
  1. CLOTRIMAZOLE/BETAMETHASONE DIPROPIONATE CREAM USP 1%/0.05% [Suspect]
     Active Substance: BETAMETHASONE DIPROPIONATE\CLOTRIMAZOLE
     Indication: SKIN IRRITATION
     Dosage: 1 DOSAGE UNITS, 1X/DAY
     Dates: start: 20160512, end: 20160524
  2. FLUOCINONIDE 0.05% [Suspect]
     Active Substance: FLUOCINONIDE
     Dosage: 2X/DAY
  3. HYDROCORTISONE CREAM USP 2.5% [Suspect]
     Active Substance: HYDROCORTISONE
     Indication: SKIN IRRITATION
     Dosage: 2.5 UNK, 1X/DAY
     Dates: start: 20160512
  4. PREMARIN [Suspect]
     Active Substance: ESTROGENS, CONJUGATED
  5. MOMETASONE FUROATE. [Suspect]
     Active Substance: MOMETASONE FUROATE

REACTIONS (1)
  - Drug effect incomplete [Recovered/Resolved]

NARRATIVE: CASE EVENT DATE: 201605
